FAERS Safety Report 17170897 (Version 2)
Quarter: 2021Q1

REPORT INFORMATION
  Report Type: Report from Study
  Country: CA (occurrence: CA)
  Receive Date: 20191218
  Receipt Date: 20210324
  Transmission Date: 20210419
  Serious: Yes (Other)
  Sender: FDA-Public Use
  Company Number: CA-IPSEN BIOPHARMACEUTICALS, INC.-2019-03864

PATIENT
  Age: 57 Year
  Sex: Male

DRUGS (3)
  1. SOMATULINE AUTOGEL [Suspect]
     Active Substance: LANREOTIDE ACETATE
     Indication: NEUROENDOCRINE TUMOUR
     Dosage: CUMULATED DOSE: 120 MG
     Route: 058
     Dates: start: 20190208, end: 2019
  2. VITAMIN C [Concomitant]
     Active Substance: ASCORBIC ACID
  3. SOMATULINE AUTOGEL [Suspect]
     Active Substance: LANREOTIDE ACETATE
     Dosage: CUMULATED DOSE: 120 MG
     Dates: start: 2019, end: 201912

REACTIONS (27)
  - Defaecation urgency [Recovering/Resolving]
  - Flushing [Recovered/Resolved]
  - Dizziness [Unknown]
  - Frequent bowel movements [Recovered/Resolved]
  - Back pain [Not Recovered/Not Resolved]
  - Diarrhoea [Recovered/Resolved]
  - Asthenia [Recovered/Resolved]
  - Diarrhoea [Unknown]
  - Dyspnoea [Unknown]
  - Syncope [Recovered/Resolved]
  - Hypopnoea [Unknown]
  - Flushing [Recovered/Resolved]
  - Pain [Not Recovered/Not Resolved]
  - Off label use [Unknown]
  - Diarrhoea [Recovering/Resolving]
  - Heart rate increased [Unknown]
  - Influenza like illness [Recovered/Resolved]
  - Presyncope [Not Recovered/Not Resolved]
  - Loss of consciousness [Not Recovered/Not Resolved]
  - Abdominal pain [Recovering/Resolving]
  - Influenza like illness [Recovered/Resolved]
  - Umbilical discharge [Recovered/Resolved]
  - Diarrhoea [Recovered/Resolved]
  - Flatulence [Unknown]
  - Pain [Recovered/Resolved]
  - Flushing [Recovered/Resolved]
  - Pallor [Unknown]

NARRATIVE: CASE EVENT DATE: 2019
